FAERS Safety Report 7559009-1 (Version None)
Quarter: 2011Q2

REPORT INFORMATION
  Report Type: 
  Country: None (occurrence: None)
  Receive Date: 20110621
  Receipt Date: 20110615
  Transmission Date: 20111010
  Serious: No
  Sender: FDA-Public Use
  Company Number: US-PFIZER INC-2011083855

PATIENT
  Sex: Female
  Weight: 63.492 kg

DRUGS (9)
  1. LEXAPRO [Concomitant]
     Indication: BIPOLAR DISORDER
     Dosage: 20 MG, 1X/DAY
  2. ALPRAZOLAM [Suspect]
     Indication: ANXIETY
  3. ALPRAZOLAM [Suspect]
     Indication: PANIC ATTACK
  4. MULTI-VITAMINS [Concomitant]
     Dosage: UNK
  5. ALPRAZOLAM [Suspect]
     Indication: POST-TRAUMATIC STRESS DISORDER
     Dosage: 1 MG, 4X/DAY AS NEEDED
     Route: 048
     Dates: start: 20110411, end: 20110416
  6. ADVAIR DISKUS 100/50 [Concomitant]
     Indication: DYSPNOEA
     Dosage: 250/50
  7. LEXAPRO [Concomitant]
     Indication: ANXIETY DISORDER
  8. IBUPROFEN (ADVIL) [Concomitant]
     Indication: ASTHMA
     Dosage: UNK
  9. LEXAPRO [Concomitant]
     Indication: PANIC DISORDER

REACTIONS (3)
  - RASH [None]
  - SOMNOLENCE [None]
  - DRUG INEFFECTIVE [None]
